FAERS Safety Report 7355599-2 (Version None)
Quarter: 2011Q1

REPORT INFORMATION
  Report Type: 
  Country: None (occurrence: None)
  Receive Date: 20110316
  Receipt Date: 20110307
  Transmission Date: 20110831
  Serious: Yes (Hospitalization)
  Sender: FDA-Public Use
  Company Number: B0705618A

PATIENT
  Sex: Male

DRUGS (1)
  1. ARIXTRA [Suspect]
     Indication: ATRIAL FIBRILLATION
     Route: 058

REACTIONS (2)
  - OFF LABEL USE [None]
  - CEREBROVASCULAR ACCIDENT [None]
